FAERS Safety Report 23925805 (Version 1)
Quarter: 2024Q2

REPORT INFORMATION
  Report Type: Spontaneous
  Country: US (occurrence: None)
  Receive Date: 20240530
  Receipt Date: 20240530
  Transmission Date: 20240716
  Serious: Yes (Hospitalization)
  Sender: FDA-Public Use
  Company Number: None

PATIENT
  Age: 76 Year
  Sex: Female
  Weight: 79 kg

DRUGS (2)
  1. TECVAYLI [Suspect]
     Active Substance: TECLISTAMAB-CQYV
     Indication: Plasma cell myeloma
     Dosage: OTHER QUANTITY : 4.823MG;?OTHER FREQUENCY : ONCE;?
     Route: 058
     Dates: start: 20240528, end: 20240528
  2. TECVAYLI [Concomitant]
     Active Substance: TECLISTAMAB-CQYV
     Dates: start: 20240528

REACTIONS (2)
  - Cytokine release syndrome [None]
  - Hypotension [None]

NARRATIVE: CASE EVENT DATE: 20240530
